FAERS Safety Report 5703769-9 (Version None)
Quarter: 2008Q2

REPORT INFORMATION
  Report Type: 
  Country: None (occurrence: None)
  Receive Date: 20080413
  Receipt Date: 20080401
  Transmission Date: 20081010
  Serious: Yes (Life-Threatening, Hospitalization)
  Sender: FDA-Public Use
  Company Number: PHHY2008GB03957

PATIENT
  Age: 69 Year
  Sex: Male

DRUGS (11)
  1. ASPIRIN [Concomitant]
  2. ATENOLOL [Concomitant]
  3. ESOMEPRAZOLE [Concomitant]
  4. FOLIC ACID [Concomitant]
  5. RAMIPRIL [Concomitant]
  6. TRAMADOL HCL [Concomitant]
  7. DICLOFENAC SODIUM [Suspect]
     Indication: PROCEDURAL PAIN
     Dosage: 100 MG, QD
     Dates: start: 20071127, end: 20071203
  8. ATORVASTATIN [Suspect]
     Dosage: 40 MG, QD
     Dates: end: 20071217
  9. EZETIMIBE [Suspect]
     Dosage: 10 MG, QD
     Dates: end: 20071217
  10. FLOXACILLIN SODIUM [Suspect]
     Indication: POST PROCEDURAL INFECTION
     Dosage: 1 G, QID
     Dates: start: 20071127, end: 20071217
  11. FUSIDATE SODIUM [Suspect]
     Indication: POST PROCEDURAL INFECTION
     Dosage: 750 MG, TID
     Dates: start: 20071127, end: 20071217

REACTIONS (2)
  - RENAL FAILURE ACUTE [None]
  - RHABDOMYOLYSIS [None]
